FAERS Safety Report 18821886 (Version 5)
Quarter: 2022Q1

REPORT INFORMATION
  Report Type: Report from Study
  Country: MX (occurrence: MX)
  Receive Date: 20210202
  Receipt Date: 20220228
  Transmission Date: 20220423
  Serious: Yes (Other)
  Sender: FDA-Public Use
  Company Number: NVSC2021MX022173

PATIENT
  Age: 54 Year
  Sex: Female
  Weight: 65 kg

DRUGS (2)
  1. TASIGNA [Suspect]
     Active Substance: NILOTINIB
     Indication: Chronic myeloid leukaemia
     Dosage: 800 MG, QD
     Route: 048
     Dates: start: 20110901
  2. INFLUENZA VIRUS VACCINE [Concomitant]
     Active Substance: INFLUENZA VIRUS VACCINE
     Indication: Product used for unknown indication
     Dosage: UNK
     Route: 065
     Dates: start: 20210121

REACTIONS (17)
  - Transaminases abnormal [Not Recovered/Not Resolved]
  - Gastritis [Not Recovered/Not Resolved]
  - Liver disorder [Not Recovered/Not Resolved]
  - Food poisoning [Unknown]
  - COVID-19 [Recovered/Resolved with Sequelae]
  - Pyrexia [Recovering/Resolving]
  - Eye pain [Unknown]
  - Dysgeusia [Unknown]
  - Gingival bleeding [Unknown]
  - Chills [Unknown]
  - Headache [Unknown]
  - Fatigue [Unknown]
  - Feeling abnormal [Recovering/Resolving]
  - Inappropriate schedule of product administration [Unknown]
  - Colitis [Unknown]
  - Abdominal distension [Unknown]
  - Nervousness [Unknown]

NARRATIVE: CASE EVENT DATE: 20210125
